FAERS Safety Report 8507917-7 (Version None)
Quarter: 2012Q3

REPORT INFORMATION
  Report Type: 
  Country: None (occurrence: None)
  Receive Date: 20120709
  Receipt Date: 20120709
  Transmission Date: 20120928
  Serious: No
  Sender: FDA-Public Use
  Company Number: None

PATIENT

DRUGS (2)
  1. ALBUTEROL SULFATE [Suspect]
     Dosage: SOLUTION INHALATION ONLY
  2. SODIUM CHLORIDE 0.9% [Suspect]
     Dosage: SOLUTION INHALATION ONLY

REACTIONS (1)
  - PRODUCT LABEL CONFUSION [None]
